FAERS Safety Report 8166662-0 (Version None)
Quarter: 2012Q1

REPORT INFORMATION
  Report Type: 
  Country: None (occurrence: None)
  Receive Date: 20120221
  Receipt Date: 20120220
  Transmission Date: 20120608
  Serious: Yes (Hospitalization)
  Sender: FDA-Public Use
  Company Number: TCI2012A00702

PATIENT
  Sex: Female

DRUGS (6)
  1. ATELEC (CLINIDIPINE) [Concomitant]
  2. FAMOTIDINE [Concomitant]
  3. DIOVAN [Concomitant]
  4. ACTOS [Suspect]
     Indication: BLOOD GLUCOSE ABNORMAL
     Dosage: 15 MG (15 MG, 1 D)
     Route: 048
     Dates: start: 20120201, end: 20120202
  5. ALPRAZOLAM [Concomitant]
  6. CARVEDILOL [Concomitant]

REACTIONS (1)
  - ASTHMA [None]
